FAERS Safety Report 8173625-8 (Version None)
Quarter: 2012Q1

REPORT INFORMATION
  Report Type: 
  Country: None (occurrence: None)
  Receive Date: 20120223
  Receipt Date: 20120207
  Transmission Date: 20120608
  Serious: Yes (Hospitalization, Other)
  Sender: FDA-Public Use
  Company Number: 1000028436

PATIENT
  Age: 83 Year
  Sex: Male

DRUGS (8)
  1. MEMANTINE HYDROCHLORIDE [Suspect]
     Indication: DEMENTIA ALZHEIMER'S TYPE
     Dosage: 20 MG (20 MG, 1 IN 1 D), ORAL
     Route: 048
     Dates: end: 20120206
  2. THEOLONG (THEOPHYLLINE) (THEOPHYLLINE) [Concomitant]
  3. LANSOPRAZOLE [Concomitant]
  4. ERYTHROMYCIN [Concomitant]
  5. PANTETHINE (PANTETHINE) (PANTETHINE) [Concomitant]
  6. MEMANTINE HYDROCHLORIDE [Suspect]
     Indication: DEMENTIA ALZHEIMER'S TYPE
     Dosage: 5 MG (5 MG, 1 IN 1 D), ORAL; 10 MG (10 MG, 1 IN 1 D), ORAL; 15 MG (15 MG, 1 IN 1 D), ORAL
     Route: 048
     Dates: start: 20111201
  7. FLIVAS (NAFTOPIDIL) (NAFTOPIDIL) [Concomitant]
  8. MAGMITT (MAGNESIUM OXIDE) (MAGNESIUM OXIDE) [Concomitant]

REACTIONS (5)
  - HYPOGLYCAEMIA [None]
  - DEPRESSED LEVEL OF CONSCIOUSNESS [None]
  - BLOOD CREATININE INCREASED [None]
  - OXYGEN SATURATION DECREASED [None]
  - PNEUMONIA [None]
